FAERS Safety Report 23920137 (Version 5)
Quarter: 2024Q3

REPORT INFORMATION
  Report Type: Spontaneous
  Country: LU (occurrence: LU)
  Receive Date: 20240530
  Receipt Date: 20240816
  Transmission Date: 20241017
  Serious: Yes (Other)
  Sender: PFIZER
  Company Number: LU-PFIZER INC-202400175716

PATIENT
  Sex: Female

DRUGS (2)
  1. SOMAVERT [Suspect]
     Active Substance: PEGVISOMANT
     Dosage: 60 MG/2ML ONCE A WEEK
     Route: 058
  2. SOMAVERT [Suspect]
     Active Substance: PEGVISOMANT
     Dosage: 20MG/ML ONCE EVERY OTHER WEEK
     Route: 058

REACTIONS (5)
  - Drug ineffective [Unknown]
  - Product preparation issue [Unknown]
  - Drug administered in wrong device [Unknown]
  - Off label use [Unknown]
  - Off label use [Unknown]
